FAERS Safety Report 4327520-2 (Version None)
Quarter: 2004Q1

REPORT INFORMATION
  Report Type: 
  Country: None (occurrence: None)
  Receive Date: 20040325
  Receipt Date: 20040325
  Transmission Date: 20041129
  Serious: Yes (Life-Threatening)
  Sender: FDA-Public Use
  Company Number: 805#1#2003-00043

PATIENT
  Age: 69 Year
  Sex: Male

DRUGS (10)
  1. ALPROSTADIL [Suspect]
     Indication: ATHEROSCLEROSIS OBLITERANS
     Dosage: 60 MCG
     Route: 041
     Dates: start: 20031007, end: 20031101
  2. HEPARIN [Suspect]
     Indication: HAEMODIALYSIS
     Dosage: 2000 IU
     Route: 010
     Dates: start: 19970106, end: 20031101
  3. PRECIPITATED-CALCIUM-CARBONATE [Concomitant]
  4. CETIRIZINE-HYDROCHLORIDE (CETERIZINE HYDROCHLORIDE) [Concomitant]
  5. HYDROXYZINE-PAMOATE (HYDROXYZINE HYDROCHLORIDE) [Concomitant]
  6. NITROGLYCEIN (GLYCERYL TRINITRATE) [Concomitant]
  7. AMLODIPINE BESYLATE [Concomitant]
  8. LOSARTAN POTASSIUM [Concomitant]
  9. METHYLDOPA [Concomitant]
  10. SEVELAMER-HYDROCHLORIDE [Concomitant]

REACTIONS (8)
  - BLOOD PRESSURE INCREASED [None]
  - CEREBRAL HAEMORRHAGE [None]
  - GRIP STRENGTH DECREASED [None]
  - HAEMORRHAGIC DIATHESIS [None]
  - MOVEMENT DISORDER [None]
  - SOMNOLENCE [None]
  - SPEECH DISORDER [None]
  - URINARY INCONTINENCE [None]
